FAERS Safety Report 7621039-9 (Version None)
Quarter: 2011Q3

REPORT INFORMATION
  Report Type: 
  Country: None (occurrence: None)
  Receive Date: 20110719
  Receipt Date: 20110523
  Transmission Date: 20111222
  Serious: No
  Sender: FDA-Public Use
  Company Number: US-KINGPHARMUSA00001-K201100630

PATIENT
  Age: 65 Year
  Sex: Female
  Weight: 79.365 kg

DRUGS (3)
  1. CITRICAL [Concomitant]
     Dosage: UNK
  2. LEVOXYL [Suspect]
     Indication: HYPOTHYROIDISM
     Dosage: 62.5 MCG, QD
     Route: 048
  3. CENTRUM SILVER [Concomitant]
     Dosage: UNK

REACTIONS (4)
  - OROPHARYNGEAL PAIN [None]
  - MALAISE [None]
  - CHOKING [None]
  - VIRAL INFECTION [None]
